FAERS Safety Report 4519267-4 (Version None)
Quarter: 2004Q4

REPORT INFORMATION
  Report Type: 
  Country: None (occurrence: None)
  Receive Date: 20041201
  Receipt Date: 20041118
  Transmission Date: 20050328
  Serious: Yes (Hospitalization, Other)
  Sender: FDA-Public Use
  Company Number: 2004094094

PATIENT
  Age: 81 Year
  Sex: Female

DRUGS (5)
  1. ZOLOFT [Suspect]
     Indication: DEPRESSION
     Dosage: 50 MG (50 MG, 1 IN 1 D), ORAL
     Route: 048
     Dates: start: 20040301, end: 20040901
  2. CLOXACILLIN SODIUM [Concomitant]
  3. FERROUS SULFATE TAB [Concomitant]
  4. PREDNISOLONE [Concomitant]
  5. ATENOLOL [Concomitant]

REACTIONS (2)
  - COLITIS MICROSCOPIC [None]
  - FEMORAL NECK FRACTURE [None]
